FAERS Safety Report 20654683 (Version 1)
Quarter: 2022Q1

REPORT INFORMATION
  Report Type: Spontaneous
  Country: IT (occurrence: IT)
  Receive Date: 20220330
  Receipt Date: 20220330
  Transmission Date: 20220424
  Serious: Yes (Hospitalization, Other)
  Sender: FDA-Public Use
  Company Number: IT-AMGEN-ITASP2022027708

PATIENT
  Sex: Male

DRUGS (13)
  1. CINACALCET HYDROCHLORIDE [Suspect]
     Active Substance: CINACALCET HYDROCHLORIDE
     Indication: Hyperparathyroidism primary
     Dosage: 2.9 MILLIGRAM/KILOGRAM, QD
     Route: 065
  2. CINACALCET HYDROCHLORIDE [Suspect]
     Active Substance: CINACALCET HYDROCHLORIDE
     Dosage: 115 MILLIGRAM/SQ. METER, QD
     Route: 065
     Dates: start: 2011
  3. CINACALCET HYDROCHLORIDE [Suspect]
     Active Substance: CINACALCET HYDROCHLORIDE
     Dosage: 6.1 MILLIGRAM/KILOGRAM, QD
     Route: 065
     Dates: start: 201212
  4. CINACALCET HYDROCHLORIDE [Suspect]
     Active Substance: CINACALCET HYDROCHLORIDE
     Dosage: 6.5 MILLIGRAM/KILOGRAM, QD
     Route: 065
     Dates: end: 2011
  5. CINACALCET HYDROCHLORIDE [Suspect]
     Active Substance: CINACALCET HYDROCHLORIDE
     Dosage: 4.7 MILLIGRAM/KILOGRAM, QD
     Route: 065
  6. CINACALCET HYDROCHLORIDE [Suspect]
     Active Substance: CINACALCET HYDROCHLORIDE
     Dosage: 4 MILLIGRAM/KILOGRAM, QD
     Route: 065
  7. CINACALCET HYDROCHLORIDE [Suspect]
     Active Substance: CINACALCET HYDROCHLORIDE
     Dosage: 2.9 MILLIGRAM/KILOGRAM, QD
     Route: 065
  8. CINACALCET HYDROCHLORIDE [Suspect]
     Active Substance: CINACALCET HYDROCHLORIDE
     Dosage: 3.5 MILLIGRAM/KILOGRAM, QD
     Route: 065
  9. CINACALCET HYDROCHLORIDE [Suspect]
     Active Substance: CINACALCET HYDROCHLORIDE
     Dosage: 20 MILLIGRAM/SQ. METER, QD
     Route: 065
  10. CINACALCET HYDROCHLORIDE [Suspect]
     Active Substance: CINACALCET HYDROCHLORIDE
     Dosage: 2.7 MILLIGRAM/KILOGRAM, QD
     Route: 065
  11. CINACALCET HYDROCHLORIDE [Suspect]
     Active Substance: CINACALCET HYDROCHLORIDE
     Dosage: 4.3 MILLIGRAM/KILOGRAM, QD
     Route: 065
  12. CINACALCET HYDROCHLORIDE [Suspect]
     Active Substance: CINACALCET HYDROCHLORIDE
     Dosage: 3.2 MILLIGRAM/KILOGRAM, QD
     Route: 065
  13. CINACALCET HYDROCHLORIDE [Suspect]
     Active Substance: CINACALCET HYDROCHLORIDE
     Dosage: 3.8 MILLIGRAM/KILOGRAM, QD
     Route: 065

REACTIONS (12)
  - Loss of personal independence in daily activities [Unknown]
  - Growth retardation [Recovering/Resolving]
  - Laryngeal nerve dysfunction [Recovered/Resolved]
  - Decreased appetite [Recovering/Resolving]
  - Adhesion [Unknown]
  - Parathyroid hyperplasia [Unknown]
  - Hypoparathyroidism [Unknown]
  - Nausea [Recovered/Resolved]
  - Vomiting [Recovered/Resolved]
  - Gastrointestinal disorder [Unknown]
  - Hypocalcaemia [Unknown]
  - Off label use [Unknown]
